FAERS Safety Report 7555854-7 (Version None)
Quarter: 2011Q2

REPORT INFORMATION
  Report Type: 
  Country: None (occurrence: None)
  Receive Date: 20110618
  Receipt Date: 20110612
  Transmission Date: 20111010
  Serious: Yes (Other)
  Sender: FDA-Public Use
  Company Number: US-BAYER-2011-051005

PATIENT
  Sex: Female

DRUGS (1)
  1. CITRACAL MAXIMUM [Suspect]
     Route: 048

REACTIONS (2)
  - PRODUCT SIZE ISSUE [None]
  - CHOKING [None]
